FAERS Safety Report 4669447-2 (Version None)
Quarter: 2005Q2

REPORT INFORMATION
  Report Type: 
  Country: None (occurrence: None)
  Receive Date: 20050523
  Receipt Date: 20041025
  Transmission Date: 20051028
  Serious: Yes (Disabling)
  Sender: FDA-Public Use
  Company Number: US-ROCHE-384383

PATIENT
  Age: 15 Year
  Sex: Male
  Weight: 74.8 kg

DRUGS (5)
  1. ACCUTANE [Suspect]
     Route: 065
     Dates: start: 19990809, end: 20000106
  2. ALBUTEROL [Concomitant]
     Indication: ASTHMA
     Route: 055
  3. CLARITIN-D [Concomitant]
  4. BENZO-AC 10% #1 OINTMENT [Concomitant]
     Route: 061
     Dates: start: 19991108
  5. KEFLEX [Concomitant]
     Dates: start: 19991206

REACTIONS (45)
  - ALCOHOLISM [None]
  - ANGER [None]
  - ANXIETY [None]
  - ARTHROPOD BITE [None]
  - ASTHENIA [None]
  - BACK PAIN [None]
  - BLOOD GLUCOSE INCREASED [None]
  - BLOOD TRIGLYCERIDES INCREASED [None]
  - BOWEL MOVEMENT IRREGULARITY [None]
  - BRONCHITIS [None]
  - CARBON DIOXIDE DECREASED [None]
  - CELLULITIS [None]
  - CHEST PAIN [None]
  - CHEST WALL PAIN [None]
  - CONTUSION [None]
  - CROHN'S DISEASE [None]
  - DEPRESSED MOOD [None]
  - DEPRESSION [None]
  - DRUG EFFECT DECREASED [None]
  - DYSPEPSIA [None]
  - EPISTAXIS [None]
  - FATIGUE [None]
  - FLATULENCE [None]
  - GASTROINTESTINAL DISORDER [None]
  - GASTROOESOPHAGEAL REFLUX DISEASE [None]
  - GRANULOCYTE COUNT INCREASED [None]
  - HEADACHE [None]
  - HYPOAESTHESIA [None]
  - INFLAMMATORY BOWEL DISEASE [None]
  - INTESTINAL HAEMORRHAGE [None]
  - IRRITABLE BOWEL SYNDROME [None]
  - LIP DRY [None]
  - LYMPHOCYTE COUNT DECREASED [None]
  - MOOD SWINGS [None]
  - MULTI-ORGAN DISORDER [None]
  - MUSCLE STRAIN [None]
  - OTITIS EXTERNA [None]
  - OTITIS MEDIA [None]
  - PAIN [None]
  - PHARYNGITIS [None]
  - RECTAL HAEMORRHAGE [None]
  - ROAD TRAFFIC ACCIDENT [None]
  - SMOKER [None]
  - WEIGHT DECREASED [None]
  - WHITE BLOOD CELL COUNT INCREASED [None]
